FAERS Safety Report 12340975 (Version 2)
Quarter: 2016Q3

REPORT INFORMATION
  Report Type: Spontaneous
  Country: US (occurrence: US)
  Receive Date: 20160506
  Receipt Date: 20160725
  Transmission Date: 20161109
  Serious: Yes (Other)
  Sender: FDA-Public Use
  Company Number: US-AMGEN-USASP2016056263

PATIENT
  Age: 67 Year
  Sex: Male

DRUGS (1)
  1. REPATHA [Suspect]
     Active Substance: EVOLOCUMAB
     Indication: BLOOD CHOLESTEROL INCREASED
     Dosage: 140 MG, EVERY 10 DAYS
     Route: 065

REACTIONS (12)
  - Drug hypersensitivity [Unknown]
  - Chest pain [Unknown]
  - Pain [Unknown]
  - Pain in extremity [Unknown]
  - Chest discomfort [Unknown]
  - Neck pain [Unknown]
  - Back pain [Unknown]
  - Arthralgia [Unknown]
  - Exercise tolerance decreased [Unknown]
  - Inappropriate schedule of drug administration [Unknown]
  - Stent placement [Unknown]
  - Musculoskeletal pain [Unknown]
